FAERS Safety Report 5075403-5 (Version None)
Quarter: 2006Q3

REPORT INFORMATION
  Report Type: 
  Country: None (occurrence: None)
  Receive Date: 20060809
  Receipt Date: 20060728
  Transmission Date: 20061208
  Serious: Yes (Other)
  Sender: FDA-Public Use
  Company Number: RU-SANOFI-SYNTHELABO-A01200605970

PATIENT
  Sex: Female

DRUGS (3)
  1. DIOVAN [Suspect]
     Indication: HYPERTENSION
     Route: 048
     Dates: start: 20060701, end: 20060701
  2. DIOVAN [Suspect]
     Route: 048
     Dates: start: 20060701, end: 20060712
  3. LOCREN [Suspect]
     Indication: HYPERTENSION
     Route: 048
     Dates: start: 20060701, end: 20060712

REACTIONS (5)
  - ANGIONEUROTIC OEDEMA [None]
  - HYPERSENSITIVITY [None]
  - LARYNGEAL OEDEMA [None]
  - URTICARIA [None]
  - WHEEZING [None]
